FAERS Safety Report 8936648 (Version 1)
Quarter: 2012Q4

REPORT INFORMATION
  Report Type: 
  Country: US (occurrence: US)
  Receive Date: 20121130
  Receipt Date: 20121130
  Transmission Date: 20130627
  Serious: No
  Sender: FDA-Public Use
  Company Number: US-B.I. PHARMACEUTICALS,INC./RIDGEFIELD-2012-BI-00913BP

PATIENT
  Age: 15 Year
  Sex: Male

DRUGS (6)
  1. ATROVENT INHALATION SOLUTION [Suspect]
     Indication: CHRONIC OBSTRUCTIVE PULMONARY DISEASE
  2. ATROVENT INHALATION SOLUTION [Suspect]
     Indication: ASTHMA
  3. FLOVENT [Concomitant]
  4. ALBUTEROL [Concomitant]
  5. PULMICORT [Concomitant]
  6. XOPENEX [Concomitant]

REACTIONS (1)
  - Pain [Unknown]
